FAERS Safety Report 11362469 (Version 1)
Quarter: 2015Q3

REPORT INFORMATION
  Report Type: Spontaneous
  Country: US (occurrence: US)
  Receive Date: 20150810
  Receipt Date: 20150810
  Transmission Date: 20151125
  Serious: No
  Sender: FDA-Public Use
  Company Number: US-BRISTOL-MYERS SQUIBB COMPANY-BMS-2015-051340

PATIENT
  Sex: Male
  Weight: 61.22 kg

DRUGS (1)
  1. ABILIFY [Suspect]
     Active Substance: ARIPIPRAZOLE
     Indication: AUTISM
     Dosage: 1 UNK, UNK
     Route: 048

REACTIONS (3)
  - Drug ineffective [Unknown]
  - Tic [Not Recovered/Not Resolved]
  - Drug withdrawal syndrome [Recovered/Resolved]
